FAERS Safety Report 6580554-X (Version None)
Quarter: 2010Q1

REPORT INFORMATION
  Report Type: 
  Country: None (occurrence: None)
  Receive Date: 20100212
  Receipt Date: 20100208
  Transmission Date: 20100710
  Serious: Yes (Other)
  Sender: FDA-Public Use
  Company Number: US-PFIZER INC-2010017184

PATIENT
  Sex: Male
  Weight: 61.234 kg

DRUGS (9)
  1. CHANTIX [Suspect]
     Indication: SMOKING CESSATION THERAPY
     Route: 048
     Dates: start: 20100130, end: 20100207
  2. OXYGEN [Concomitant]
     Indication: EMPHYSEMA
     Dosage: FREQUENCY: 3X/DAY,
  3. OXYGEN [Concomitant]
     Indication: CHRONIC OBSTRUCTIVE PULMONARY DISEASE
  4. OXYGEN [Concomitant]
     Indication: LUNG DISORDER
  5. ALBUTEROL [Concomitant]
     Indication: EMPHYSEMA
  6. ALBUTEROL [Concomitant]
     Indication: CHRONIC OBSTRUCTIVE PULMONARY DISEASE
  7. ALBUTEROL [Concomitant]
     Indication: LUNG DISORDER
  8. NICOTINE [Concomitant]
  9. DOXYCYCLINE HYCLATE [Concomitant]

REACTIONS (5)
  - DYSPHAGIA [None]
  - DYSPNOEA [None]
  - OROPHARYNGEAL BLISTERING [None]
  - PHARYNGEAL OEDEMA [None]
  - SWELLING FACE [None]
